FAERS Safety Report 7628630-4 (Version None)
Quarter: 2011Q3

REPORT INFORMATION
  Report Type: 
  Country: None (occurrence: None)
  Receive Date: 20110722
  Receipt Date: 20110714
  Transmission Date: 20111222
  Serious: Yes (Hospitalization)
  Sender: FDA-Public Use
  Company Number: US-B.I. PHARMACEUTICALS,INC./RIDGEFIELD-2011-BP-15294BP

PATIENT
  Sex: Male

DRUGS (6)
  1. PREVACID [Concomitant]
  2. CARDIZEM [Concomitant]
  3. ATENOLOL [Concomitant]
  4. PRADAXA [Suspect]
     Indication: ATRIAL FIBRILLATION
     Dosage: 300 MG
  5. ALLEGRA [Concomitant]
  6. AMIODARONE HCL [Concomitant]

REACTIONS (6)
  - CONTUSION [None]
  - EPISTAXIS [None]
  - INTERNATIONAL NORMALISED RATIO INCREASED [None]
  - GASTROINTESTINAL HAEMORRHAGE [None]
  - MALAISE [None]
  - COAGULATION TIME PROLONGED [None]
